FAERS Safety Report 7125738-7 (Version None)
Quarter: 2010Q4

REPORT INFORMATION
  Report Type: 
  Country: None (occurrence: None)
  Receive Date: 20101129
  Receipt Date: 20101123
  Transmission Date: 20110411
  Serious: Yes (Hospitalization)
  Sender: FDA-Public Use
  Company Number: B0678489A

PATIENT
  Sex: Female

DRUGS (3)
  1. ARIXTRA [Suspect]
     Indication: THROMBOSIS PROPHYLAXIS
     Dosage: 2.5MG PER DAY
     Route: 058
     Dates: start: 20100706, end: 20100728
  2. IMOVANE [Concomitant]
     Indication: INSOMNIA
     Route: 065
  3. TEMESTA [Concomitant]
     Indication: INSOMNIA
     Route: 065

REACTIONS (2)
  - CONNECTIVE TISSUE DISORDER [None]
  - HAEMATOMA [None]
